FAERS Safety Report 6845643-0 (Version None)
Quarter: 2010Q3

REPORT INFORMATION
  Report Type: 
  Country: None (occurrence: None)
  Receive Date: 20100715
  Receipt Date: 20070821
  Transmission Date: 20110219
  Serious: No
  Sender: FDA-Public Use
  Company Number: US-PFIZER INC-2007071509

PATIENT
  Sex: Female
  Weight: 83.9 kg

DRUGS (12)
  1. CHANTIX [Suspect]
     Indication: SMOKING CESSATION THERAPY
     Route: 048
     Dates: start: 20070122
  2. METOPROLOL [Concomitant]
  3. SEROQUEL [Concomitant]
  4. NORVASC [Concomitant]
  5. HYDROCHLOROTHIAZIDE [Concomitant]
  6. ACETYLSALICYLIC ACID [Concomitant]
  7. CALCIUM [Concomitant]
  8. MULTI-VITAMINS [Concomitant]
  9. NAPROXEN [Concomitant]
  10. OMEGA-3 TRIGLYCERIDES [Concomitant]
  11. CLONAZEPAM [Concomitant]
  12. LISINOPRIL [Concomitant]

REACTIONS (4)
  - HAEMATOCRIT INCREASED [None]
  - HAEMOGLOBIN INCREASED [None]
  - MUSCULAR WEAKNESS [None]
  - SLEEP DISORDER [None]
